FAERS Safety Report 4558572-2 (Version None)
Quarter: 2005Q1

REPORT INFORMATION
  Report Type: 
  Country: None (occurrence: None)
  Receive Date: 20050119
  Receipt Date: 20041029
  Transmission Date: 20050727
  Serious: Yes (Death)
  Sender: FDA-Public Use
  Company Number: 9159

PATIENT
  Age: 72 Year

DRUGS (4)
  1. AMIODARONE HCL [Suspect]
     Indication: ATRIAL FLUTTER
     Dosage: 1200 MG/600 MG IV
     Route: 042
     Dates: start: 20040905, end: 20040907
  2. AMIODARONE HCL [Suspect]
     Indication: ATRIAL FLUTTER
     Dosage: 1200 MG/600 MG IV
     Route: 042
     Dates: start: 20040907, end: 20040912
  3. DIGOXIN [Concomitant]
  4. BISOPROLOL FUMARATE [Concomitant]

REACTIONS (6)
  - ALVEOLITIS FIBROSING [None]
  - CEREBRAL HAEMORRHAGE [None]
  - HAEMODIALYSIS [None]
  - PNEUMONITIS [None]
  - RENAL FAILURE [None]
  - RENAL FAILURE ACUTE [None]
